FAERS Safety Report 13008946 (Version 9)
Quarter: 2018Q1

REPORT INFORMATION
  Report Type: Report from Study
  Country: JP (occurrence: JP)
  Receive Date: 20161208
  Receipt Date: 20180328
  Transmission Date: 20180508
  Serious: Yes (Hospitalization, Other)
  Sender: FDA-Public Use
  Company Number: JP-ALXN-A201609430AA

PATIENT
  Age: 1 Month
  Sex: Female
  Weight: 4 kg

DRUGS (6)
  1. INCREMIN                           /00023544/ [Concomitant]
     Indication: PROPHYLAXIS
     Dosage: 1.3 ML, TID
     Route: 048
     Dates: start: 20170314
  2. FENTANYL. [Concomitant]
     Active Substance: FENTANYL
     Indication: HYPOPHOSPHATASIA
     Dosage: 5 ?G/KG, CONTINUOUS 24 HOURS
     Route: 041
     Dates: start: 20161017, end: 20170324
  3. STRENSIQ [Suspect]
     Active Substance: ASFOTASE ALFA
     Indication: HYPOPHOSPHATASIA
     Dosage: 2 MG/KG, TIW
     Route: 058
     Dates: start: 20161017
  4. CATABON [Concomitant]
     Active Substance: DOPAMINE HYDROCHLORIDE
     Indication: HYPOPHOSPHATASIA
     Dosage: 5 MG/KG,  CONTINUOUS 24 HOURS
     Route: 041
     Dates: start: 20161017, end: 20161108
  5. SOLU-CORTEF [Suspect]
     Active Substance: HYDROCORTISONE SODIUM SUCCINATE
     Indication: ASCITES
     Dosage: 3 MG, TID
     Route: 042
     Dates: start: 20161201, end: 20170120
  6. MIDAZOLAM [Concomitant]
     Active Substance: MIDAZOLAM HYDROCHLORIDE
     Indication: HYPOPHOSPHATASIA
     Dosage: 0.2 MG/KG,  CONTINUOUS 24 HOURS
     Route: 041
     Dates: start: 20170227, end: 20170327

REACTIONS (6)
  - Ascites [Recovered/Resolved]
  - Tracheomalacia [Not Recovered/Not Resolved]
  - Bronchomalacia [Not Recovered/Not Resolved]
  - Blood alkaline phosphatase decreased [Recovered/Resolved]
  - Anaemia [Not Recovered/Not Resolved]
  - Hypoacusis [Not Recovered/Not Resolved]

NARRATIVE: CASE EVENT DATE: 20161129
